FAERS Safety Report 8270379-1 (Version None)
Quarter: 2012Q2

REPORT INFORMATION
  Report Type: 
  Country: None (occurrence: None)
  Receive Date: 20120410
  Receipt Date: 20120328
  Transmission Date: 20120825
  Serious: Yes (Hospitalization, Other)
  Sender: FDA-Public Use
  Company Number: AR-AMGEN-ARGSP2012021446

PATIENT
  Age: 79 Year
  Sex: Female

DRUGS (6)
  1. ENBREL [Suspect]
     Indication: RHEUMATOID ARTHRITIS
     Dosage: 50 MG, WEEKLY
     Route: 058
     Dates: start: 20100602, end: 20100906
  2. IBANDRONATE SODIUM [Concomitant]
     Dosage: UNK
  3. RANITIDINE [Concomitant]
     Dosage: UNK
  4. METHOTREXATE [Concomitant]
     Dosage: UNK
  5. ALPLAX [Concomitant]
     Dosage: UNK
  6. FOLIC ACID [Concomitant]
     Dosage: UNK

REACTIONS (4)
  - RHEUMATOID ARTHRITIS [None]
  - ROAD TRAFFIC ACCIDENT [None]
  - FEMUR FRACTURE [None]
  - SPINAL COLUMN INJURY [None]
